FAERS Safety Report 15468358 (Version 3)
Quarter: 2018Q4

REPORT INFORMATION
  Report Type: Spontaneous
  Country: DE (occurrence: DE)
  Receive Date: 20181005
  Receipt Date: 20181203
  Transmission Date: 20190204
  Serious: Yes (Hospitalization, Other)
  Sender: FDA-Public Use
  Company Number: DE-PFIZER INC-2018396341

PATIENT
  Age: 52 Year
  Sex: Female

DRUGS (6)
  1. LAMOTRIGINE. [Interacting]
     Active Substance: LAMOTRIGINE
     Indication: EPILEPSY
     Dosage: 700 MG, 1X/DAY
     Route: 048
  2. VALPROIC ACID. [Interacting]
     Active Substance: VALPROIC ACID
     Indication: PARTIAL SEIZURES
     Dosage: 600 MG, DAILY
  3. LAMOTRIGINE. [Interacting]
     Active Substance: LAMOTRIGINE
     Dosage: 450 MG, 1X/DAY
     Route: 048
  4. LEVETIRACETAM. [Suspect]
     Active Substance: LEVETIRACETAM
     Indication: PARTIAL SEIZURES
     Dosage: 4000 MG, 1X/DAY
  5. RISPERIDONE. [Concomitant]
     Active Substance: RISPERIDONE
     Indication: PSYCHOTIC DISORDER
     Dosage: 0.5 MG, 1X/DAY
  6. RISPERIDONE. [Concomitant]
     Active Substance: RISPERIDONE
     Dosage: 4 MG, UNK

REACTIONS (12)
  - Aggression [Recovered/Resolved]
  - Disease recurrence [Recovered/Resolved]
  - Psychotic disorder [Recovered/Resolved]
  - Sleep disorder [Unknown]
  - Drug interaction [Recovered/Resolved]
  - Attention-seeking behaviour [Recovered/Resolved]
  - Hallucination, auditory [Recovered/Resolved]
  - Drug level increased [Recovering/Resolving]
  - Agitation [Recovered/Resolved]
  - Seizure [Unknown]
  - Delusion [Recovered/Resolved]
  - Abnormal behaviour [Recovered/Resolved]
